FAERS Safety Report 14064375 (Version 1)
Quarter: 2017Q4

REPORT INFORMATION
  Report Type: Spontaneous
  Country: US (occurrence: US)
  Receive Date: 20171009
  Receipt Date: 20171009
  Transmission Date: 20180321
  Serious: Yes (Life-Threatening, Hospitalization)
  Sender: FDA-Public Use
  Company Number: US-LPDUSPRD-20171364

PATIENT
  Age: 14 Year
  Sex: Male

DRUGS (2)
  1. SODIUM CHLORIDE INJECTION, USP (2802-25) [Suspect]
     Active Substance: SODIUM CHLORIDE
     Dosage: UNKNOWN
     Route: 065
  2. EPINEPHRINE INJECTION, USP (1071-25) [Suspect]
     Active Substance: EPINEPHRINE
     Dosage: 1MG/L (1:1000)
     Route: 065

REACTIONS (2)
  - Pulmonary oedema [Unknown]
  - Venous intravasation [Recovered/Resolved]
